FAERS Safety Report 4334500-X (Version None)
Quarter: 2004Q2

REPORT INFORMATION
  Report Type: 
  Country: None (occurrence: None)
  Receive Date: 20040407
  Receipt Date: 20040218
  Transmission Date: 20050107
  Serious: Yes (Hospitalization)
  Sender: FDA-Public Use
  Company Number: FR-GLAXOSMITHKLINE-B0323740A

PATIENT
  Age: 16 Year
  Sex: Female
  Weight: 52.3 kg

DRUGS (3)
  1. ZOPHREN [Suspect]
     Indication: PROPHYLAXIS OF NAUSEA AND VOMITING
     Dosage: 8MG TWICE PER DAY
     Route: 042
     Dates: start: 20040112, end: 20040114
  2. VP 16 [Suspect]
     Indication: PITUITARY TUMOUR
     Dosage: 144MG PER DAY
     Route: 042
     Dates: start: 20040112, end: 20040114
  3. CARBOPLATINE [Concomitant]
     Indication: PITUITARY TUMOUR
     Dosage: 576MG PER DAY
     Route: 042
     Dates: start: 20040112, end: 20040112

REACTIONS (7)
  - CHOREOATHETOSIS [None]
  - CONFUSIONAL STATE [None]
  - DYSKINESIA [None]
  - DYSTONIA [None]
  - ELECTROENCEPHALOGRAM ABNORMAL [None]
  - EXTRAPYRAMIDAL DISORDER [None]
  - VISUAL DISTURBANCE [None]
